FAERS Safety Report 13648996 (Version 4)
Quarter: 2017Q4

REPORT INFORMATION
  Report Type: Spontaneous
  Country: US (occurrence: US)
  Receive Date: 20170613
  Receipt Date: 20171212
  Transmission Date: 20180320
  Serious: No
  Sender: FDA-Public Use
  Company Number: US-ACTELION-A-NJ2017-155221

PATIENT
  Age: 79 Year
  Sex: Male
  Weight: 122.45 kg

DRUGS (5)
  1. UPTRAVI [Suspect]
     Active Substance: SELEXIPAG
     Dosage: 800 MCG, BID
     Route: 048
     Dates: start: 20170619
  2. UPTRAVI [Suspect]
     Active Substance: SELEXIPAG
     Indication: PULMONARY ARTERIAL HYPERTENSION
     Dosage: 400 MCG, BID
     Route: 048
  3. UPTRAVI [Suspect]
     Active Substance: SELEXIPAG
     Dosage: 1600 MCG, BID
     Route: 048
  4. WARFARIN [Concomitant]
     Active Substance: WARFARIN
  5. UPTRAVI [Suspect]
     Active Substance: SELEXIPAG
     Dosage: 1000 MCG, BID
     Route: 048

REACTIONS (14)
  - Back pain [Recovered/Resolved]
  - Dizziness postural [Unknown]
  - Productive cough [Unknown]
  - Diarrhoea [Unknown]
  - Hyperhidrosis [Unknown]
  - Joint swelling [Unknown]
  - Drug dose omission [Unknown]
  - Somnolence [Unknown]
  - Nausea [Unknown]
  - Insomnia [Unknown]
  - Feeling abnormal [Unknown]
  - Pain in jaw [Unknown]
  - Chest pain [Recovered/Resolved]
  - Dyspnoea [Unknown]

NARRATIVE: CASE EVENT DATE: 201706
